FAERS Safety Report 24896146 (Version 1)
Quarter: 2025Q1

REPORT INFORMATION
  Report Type: Spontaneous
  Country: US (occurrence: US)
  Receive Date: 20250128
  Receipt Date: 20250128
  Transmission Date: 20250408
  Serious: No
  Sender: GALDERMA
  Company Number: US-GALDERMA-US2024004471

PATIENT

DRUGS (6)
  1. SOOLANTRA [Suspect]
     Active Substance: IVERMECTIN
     Indication: Delusion of parasitosis
     Route: 061
  2. SOOLANTRA [Suspect]
     Active Substance: IVERMECTIN
     Indication: Infection parasitic
  3. IVERMECTIN [Concomitant]
     Active Substance: IVERMECTIN
     Indication: Delusion of parasitosis
     Route: 048
  4. IVERMECTIN [Concomitant]
     Active Substance: IVERMECTIN
     Indication: Infection parasitic
  5. DIPHENHYDRAMINE [Concomitant]
     Active Substance: DIPHENHYDRAMINE
     Indication: Delusion of parasitosis
  6. DIPHENHYDRAMINE [Concomitant]
     Active Substance: DIPHENHYDRAMINE
     Indication: Infection parasitic

REACTIONS (1)
  - Product use in unapproved indication [Recovered/Resolved]
